FAERS Safety Report 8678448 (Version 2)
Quarter: 2013Q4

REPORT INFORMATION
  Report Type: Spontaneous
  Country: US (occurrence: US)
  Receive Date: 20120723
  Receipt Date: 20131101
  Transmission Date: 20140711
  Serious: No
  Sender: FDA-Public Use
  Company Number: US-009507513-1207USA002725

PATIENT
  Sex: 0

DRUGS (1)
  1. SINEMET [Suspect]
     Dosage: 25-100 MG, 15XD
     Route: 048

REACTIONS (2)
  - Overdose [Unknown]
  - No adverse event [Unknown]
